FAERS Safety Report 4644628-2 (Version None)
Quarter: 2005Q2

REPORT INFORMATION
  Report Type: 
  Country: None (occurrence: None)
  Receive Date: 20050426
  Receipt Date: 20050311
  Transmission Date: 20051028
  Serious: Yes (Other)
  Sender: FDA-Public Use
  Company Number: 200512292GDDC

PATIENT
  Age: 36 Year
  Sex: Female

DRUGS (2)
  1. ARAVA [Suspect]
     Dosage: DOSE: UNK
  2. DICLOFENAC SODIUM [Concomitant]
     Dosage: DOSE: UNK

REACTIONS (1)
  - RENAL TUBULAR ACIDOSIS [None]
